FAERS Safety Report 4481241-4 (Version None)
Quarter: 2004Q3

REPORT INFORMATION
  Report Type: 
  Country: None (occurrence: None)
  Receive Date: 20040923
  Receipt Date: 20040527
  Transmission Date: 20050211
  Serious: No
  Sender: FDA-Public Use
  Company Number: USA040568774

PATIENT
  Age: 52 Year
  Sex: Female
  Weight: 75 kg

DRUGS (7)
  1. FORTEO [Suspect]
     Indication: OSTEOPOROSIS
     Dates: start: 20040513
  2. ATENOLOL [Concomitant]
  3. CALCIUM [Concomitant]
  4. ESTRADIOL [Concomitant]
  5. NEURONTIN [Concomitant]
  6. ZOLOFT [Concomitant]
  7. TRAZODONE HCL [Concomitant]

REACTIONS (2)
  - BONE PAIN [None]
  - MUSCLE CRAMP [None]
